FAERS Safety Report 6163046-1 (Version None)
Quarter: 2009Q2

REPORT INFORMATION
  Report Type: 
  Country: None (occurrence: None)
  Receive Date: 20090422
  Receipt Date: 20090408
  Transmission Date: 20091009
  Serious: Yes (Life-Threatening)
  Sender: FDA-Public Use
  Company Number: GB-RANBAXY-2009RR-23442

PATIENT
  Age: 1 Year
  Sex: Male
  Weight: 10 kg

DRUGS (6)
  1. CLARITHROMYCIN [Suspect]
     Indication: PROPHYLAXIS
     Dosage: 62.5 MG, BID
     Dates: start: 20081204, end: 20090107
  2. CLARITHROMYCIN [Suspect]
     Indication: RESPIRATORY TRACT INFECTION
  3. CEFOTAXIME [Concomitant]
  4. DOBUTAMINE HCL [Concomitant]
  5. FLUCLOXACILLIN [Concomitant]
  6. METRONIDAZOLE [Concomitant]
     Route: 042

REACTIONS (2)
  - ACUTE HEPATIC FAILURE [None]
  - ALANINE AMINOTRANSFERASE [None]
